FAERS Safety Report 10341571 (Version 3)
Quarter: 2014Q3

REPORT INFORMATION
  Report Type: Spontaneous
  Country: CA (occurrence: CA)
  Receive Date: 20140725
  Receipt Date: 20140806
  Transmission Date: 20150326
  Serious: Yes (Other)
  Sender: FDA-Public Use
  Company Number: CA-AMGEN-CANSP2014054441

PATIENT
  Age: 25 Year
  Sex: Male

DRUGS (4)
  1. ENBREL [Suspect]
     Active Substance: ETANERCEPT
     Indication: PSORIASIS
  2. ENBREL [Suspect]
     Active Substance: ETANERCEPT
     Indication: PSORIASIS
  3. DOVOBET [Concomitant]
     Active Substance: BETAMETHASONE\CALCIPOTRIENE
     Dosage: UNK
  4. ENBREL [Suspect]
     Active Substance: ETANERCEPT
     Indication: PSORIATIC ARTHROPATHY
     Dosage: 50 MG, 2 TIMES/WK
     Route: 065
     Dates: start: 20140626

REACTIONS (14)
  - Local swelling [Recovering/Resolving]
  - Injection site bruising [Recovering/Resolving]
  - Injection site reaction [Unknown]
  - Joint swelling [Recovering/Resolving]
  - Induration [Recovering/Resolving]
  - Injection site swelling [Unknown]
  - Pain [Recovering/Resolving]
  - Injection site erythema [Unknown]
  - Injection site rash [Unknown]
  - Injection site inflammation [Recovered/Resolved]
  - Injection site warmth [Recovering/Resolving]
  - Hypersensitivity [Recovering/Resolving]
  - Injection site pruritus [Unknown]
  - Injection site induration [Recovering/Resolving]

NARRATIVE: CASE EVENT DATE: 2014
